FAERS Safety Report 23763543 (Version 1)
Quarter: 2024Q2

REPORT INFORMATION
  Report Type: Spontaneous
  Country: US (occurrence: None)
  Receive Date: 20240419
  Receipt Date: 20240419
  Transmission Date: 20240716
  Serious: Yes (Other)
  Sender: FDA-Public Use
  Company Number: None

PATIENT
  Age: 24 Year
  Weight: 54 kg

DRUGS (1)
  1. COSMETICS [Suspect]
     Active Substance: COSMETICS
     Indication: Prophylaxis against solar radiation
     Dosage: OTHER STRENGTH : 30 SPF?OTHER QUANTITY : 6 OUNCE(S);
     Route: 061
     Dates: start: 20240308, end: 20240309

REACTIONS (2)
  - Drug hypersensitivity [None]
  - Sunburn [None]
